FAERS Safety Report 20700130 (Version 1)
Quarter: 2022Q2

REPORT INFORMATION
  Report Type: Spontaneous
  Country: DE (occurrence: DE)
  Receive Date: 20220412
  Receipt Date: 20220412
  Transmission Date: 20220721
  Serious: Yes (Other)
  Sender: FDA-Public Use
  Company Number: DE-Desitin-2022-00269

PATIENT
  Sex: Male

DRUGS (4)
  1. CARBIDOPA\LEVODOPA [Interacting]
     Active Substance: CARBIDOPA\LEVODOPA
     Indication: Product used for unknown indication
     Dosage: 600 MILLIGRAM, QD (6 X 100 MG)
  2. ONGENTYS [Suspect]
     Active Substance: OPICAPONE
     Indication: Product used for unknown indication
     Dosage: 1 DOSAGE FORM, QD (1 X FOR 4-5 DAYS)
     Dates: start: 202201
  3. PIRIBEDIL [Suspect]
     Active Substance: PIRIBEDIL
     Indication: Product used for unknown indication
     Dosage: UNK
  4. PIRIBEDIL [Suspect]
     Active Substance: PIRIBEDIL
     Dosage: 50 MILLIGRAM, BID ( (2 X 50 MG))

REACTIONS (7)
  - Immobile [Recovering/Resolving]
  - Hallucination [Recovered/Resolved]
  - Dizziness [Not Recovered/Not Resolved]
  - Blood pressure decreased [Not Recovered/Not Resolved]
  - Feeling abnormal [Not Recovered/Not Resolved]
  - On and off phenomenon [Unknown]
  - Drug interaction [Unknown]
